FAERS Safety Report 4979717-6 (Version None)
Quarter: 2006Q2

REPORT INFORMATION
  Report Type: 
  Country: None (occurrence: None)
  Receive Date: 20060418
  Receipt Date: 20060406
  Transmission Date: 20061013
  Serious: Yes (Hospitalization, Other)
  Sender: FDA-Public Use
  Company Number: TCI2006A01612

PATIENT
  Age: 78 Year
  Sex: Male

DRUGS (9)
  1. ACTOS [Suspect]
     Indication: DIABETES MELLITUS NON-INSULIN-DEPENDENT
     Dosage: 15 MG (15 MG, 1 IN 1 D)
     Route: 048
     Dates: start: 20050524, end: 20060406
  2. KAD-1229 (MITIGLINIDE CALCIUM HYDRATE) [Suspect]
     Indication: DIABETES MELLITUS NON-INSULIN-DEPENDENT
     Dosage: 15 MG, 30 MG, OR PLACEBO (3 IN 1 D)
     Route: 048
     Dates: start: 20060215, end: 20060406
  3. TANATRIL (IMIDAPRIL HYDROCHLORIDE) [Concomitant]
  4. FAMOTIDINE [Concomitant]
  5. AMOBAN (ZOPICLONE) [Concomitant]
  6. HARNAL D (TAMSULOSIN HYDROCHLORIDE) [Concomitant]
  7. PRAVASTATIN [Concomitant]
  8. ALOSENN (ACHILLEA MILLEFOLIUM, SENNA ALEXANDRINA LEAF, SENNA ALEXANDRI [Concomitant]
  9. DAIKANGAN [Concomitant]

REACTIONS (3)
  - ABDOMINAL PAIN [None]
  - LARGE INTESTINE CARCINOMA [None]
  - OCCULT BLOOD POSITIVE [None]
